FAERS Safety Report 22938339 (Version 2)
Quarter: 2025Q1

REPORT INFORMATION
  Report Type: Spontaneous
  Country: US (occurrence: US)
  Receive Date: 20230913
  Receipt Date: 20250206
  Transmission Date: 20250409
  Serious: No
  Sender: LEO PHARM
  Company Number: US-LEO Pharma-362506

PATIENT
  Age: 23 Year

DRUGS (1)
  1. ADBRY [Suspect]
     Active Substance: TRALOKINUMAB-LDRM
     Indication: Product used for unknown indication

REACTIONS (4)
  - Injection site pain [Unknown]
  - Injection site rash [Unknown]
  - Injection site pain [Unknown]
  - Injection site pruritus [Unknown]
